FAERS Safety Report 6501649-2 (Version None)
Quarter: 2009Q4

REPORT INFORMATION
  Report Type: 
  Country: None (occurrence: None)
  Receive Date: 20091127
  Receipt Date: 20090625
  Transmission Date: 20100525
  Serious: Yes (Hospitalization)
  Sender: FDA-Public Use
  Company Number: WAES 0906USA05244

PATIENT
  Age: 15 Year
  Sex: Female

DRUGS (7)
  1. FOSAMAX [Suspect]
     Indication: FRACTURE
     Dosage: 35 MG/WKY/PO
     Route: 048
     Dates: end: 20090525
  2. KLONOPIN [Concomitant]
  3. PRILOSEC [Concomitant]
  4. AMANTADINE HYDROCHLORIDE [Concomitant]
  5. CALCIUM [Concomitant]
  6. GASTROINTESTINAL PREPARATIONS [Concomitant]
  7. TETRABENAZINE [Concomitant]

REACTIONS (2)
  - DRUG ADMINISTRATION ERROR [None]
  - DYSPHAGIA [None]
